FAERS Safety Report 25963817 (Version 1)
Quarter: 2025Q4

REPORT INFORMATION
  Report Type: Spontaneous
  Country: EU (occurrence: EU)
  Receive Date: 20251027
  Receipt Date: 20251027
  Transmission Date: 20260118
  Serious: Yes (Life-Threatening, Hospitalization)
  Sender: BAUSCH AND LOMB
  Company Number: EU-MLMSERVICE-20251015-PI674940-00059-3

PATIENT
  Sex: Female

DRUGS (1)
  1. AZATHIOPRINE [Suspect]
     Active Substance: AZATHIOPRINE
     Indication: Inflammatory bowel disease
     Route: 065

REACTIONS (4)
  - Disseminated intravascular coagulation [Recovering/Resolving]
  - Listeriosis [Recovering/Resolving]
  - Abscess bacterial [Recovering/Resolving]
  - Septic shock [Recovering/Resolving]
